FAERS Safety Report 4433499-5 (Version None)
Quarter: 2004Q3

REPORT INFORMATION
  Report Type: 
  Country: None (occurrence: None)
  Receive Date: 20040824
  Receipt Date: 20040812
  Transmission Date: 20050211
  Serious: No
  Sender: FDA-Public Use
  Company Number: 2004PK01377

PATIENT
  Age: 19 Year
  Sex: Female
  Weight: 60 kg

DRUGS (2)
  1. SEROQUEL [Suspect]
     Indication: AFFECTIVE DISORDER
     Dosage: 500 MG DAILY PO
     Route: 048
     Dates: start: 20010701
  2. ZOLOFT [Suspect]
     Indication: SCHIZOPHRENIA
     Dosage: 50 MG DAILY PO
     Route: 048
     Dates: start: 20020701

REACTIONS (6)
  - CIRCULATORY COLLAPSE [None]
  - FALL [None]
  - HEAD INJURY [None]
  - HYPOTENSION [None]
  - LOSS OF CONSCIOUSNESS [None]
  - SYNCOPE [None]
